FAERS Safety Report 4876494-4 (Version None)
Quarter: 2005Q4

REPORT INFORMATION
  Report Type: 
  Country: None (occurrence: None)
  Receive Date: 20051206
  Receipt Date: 20050824
  Transmission Date: 20060501
  Serious: No
  Sender: FDA-Public Use
  Company Number: USA0507102022

PATIENT
  Age: 51 Year
  Sex: Female

DRUGS (9)
  1. CYMBALTA [Suspect]
     Indication: PAIN
     Dosage: 120 MG
     Dates: start: 20050704
  2. DURAGESIC-100 [Concomitant]
  3. LEVOXYL [Concomitant]
  4. CORTEF (HYDROCORTISONE CIPIONATE) [Concomitant]
  5. BROMCRIPTINE [Concomitant]
  6. LORAZEPAM [Concomitant]
  7. ROBINUL (GLYCOPYRRONIUM BROMIDE) [Concomitant]
  8. PROTONIX [Concomitant]
  9. ORTHO TRI-CYCLEN [Concomitant]

REACTIONS (8)
  - ABDOMINAL PAIN [None]
  - ABNORMAL DREAMS [None]
  - FATIGUE [None]
  - FEELING HOT [None]
  - MUSCLE SPASMS [None]
  - MUSCLE TIGHTNESS [None]
  - NAUSEA [None]
  - SENSITIVITY OF TEETH [None]
